FAERS Safety Report 14680089 (Version 2)
Quarter: 2018Q3

REPORT INFORMATION
  Report Type: Spontaneous
  Country: PT (occurrence: PT)
  Receive Date: 20180326
  Receipt Date: 20180702
  Transmission Date: 20181010
  Serious: Yes (Other)
  Sender: FDA-Public Use
  Company Number: PHHY2018PT045284

PATIENT
  Age: 56 Year
  Sex: Male

DRUGS (1)
  1. LISINOPRIL. [Suspect]
     Active Substance: LISINOPRIL
     Indication: MICROALBUMINURIA
     Dosage: 10 MG, QD
     Route: 065

REACTIONS (6)
  - Concomitant disease aggravated [Unknown]
  - Product use in unapproved indication [Unknown]
  - Blood potassium increased [Unknown]
  - Hyperkalaemia [Unknown]
  - Renal tubular acidosis [Unknown]
  - Metabolic acidosis [Unknown]
